FAERS Safety Report 9571122 (Version 1)
Quarter: 2013Q4

REPORT INFORMATION
  Report Type: Spontaneous
  Country: IT (occurrence: IT)
  Receive Date: 20131001
  Receipt Date: 20131001
  Transmission Date: 20140711
  Serious: Yes (Hospitalization)
  Sender: FDA-Public Use
  Company Number: PHHY2013IT108949

PATIENT
  Age: 65 Year
  Sex: Female

DRUGS (9)
  1. SANDIMMUN NEORAL / OL [Suspect]
     Dosage: 200 MG, PER DAY
     Route: 048
     Dates: start: 20121101, end: 20121210
  2. CELLCEPT [Concomitant]
     Dosage: 1500 MG, UNK
     Route: 048
  3. ROCEFIN [Concomitant]
     Dosage: 2 G, UNK
     Route: 030
  4. ZITROMAX [Concomitant]
     Dosage: 500 MG, UNK
     Route: 048
  5. VALCYTE [Concomitant]
     Dosage: 1800 MG, UNK
     Route: 048
  6. DIFLUCAN [Concomitant]
     Dosage: 200 MG, UNK
     Route: 048
  7. ZOVIRAX [Concomitant]
     Dosage: 1200 MG, UNK
     Route: 048
  8. ORUDIS [Concomitant]
     Route: 048
  9. LEVOXACIN [Concomitant]
     Dosage: 500 MG, UNK
     Route: 048

REACTIONS (2)
  - Tubulointerstitial nephritis [Not Recovered/Not Resolved]
  - Renal tubular necrosis [Not Recovered/Not Resolved]
